FAERS Safety Report 9515069 (Version 1)
Quarter: 2013Q1

REPORT INFORMATION
  Report Type: Spontaneous
  Country: US (occurrence: None)
  Receive Date: 20130305
  Receipt Date: 20130305
  Transmission Date: 20140127
  Serious: Yes (Hospitalization)
  Sender: FDA-Public Use
  Company Number: 163-21880-12043117

PATIENT
  Age: 55 Year
  Sex: Female
  Weight: 72.58 kg

DRUGS (11)
  1. REVLIMID [Suspect]
     Indication: PLASMA CELL MYELOMA
     Dosage: 25 MG, 1 IN 1 D, PO
     Route: 048
     Dates: start: 20120405, end: 20130413
  2. VELCADE (BORTEZOMIB) (UNKNOWN) [Suspect]
     Indication: PRODUCT USED FOR UNKNOWN INDICATION
     Dosage: UNK
     Dates: start: 20120409
  3. COLACE (DOCUSATE SODIUM) (UNKNOWN) [Concomitant]
  4. PROMETHAZINE (PROMETHAZINE) (UNKNOWN) [Concomitant]
  5. SENOKOT (SENNA FRUIT) (UNKNOWN) [Concomitant]
  6. TRAMADOL (TRAMADOL) (UNKNOWN) [Concomitant]
  7. LOVENOX (HEPARIN-FRACTION, SODIUM SALT) (UNKNOWN) [Concomitant]
  8. KCL (POTASSIUM CHLORIDE) (UNKNOWN) [Concomitant]
  9. VALACYCLOVIR (VALACICLOVIR) (UNKNOWN) [Concomitant]
  10. DEXAMETHASONE (DEXAMETHASONE) (UNKNOWN) [Concomitant]
  11. POTASSIUM (POTASSIUM) (UNKNOWN) [Concomitant]

REACTIONS (8)
  - Infection [None]
  - Pyrexia [None]
  - Platelet count decreased [None]
  - White blood cell count decreased [None]
  - Red blood cell count decreased [None]
  - Nausea [None]
  - Vomiting [None]
  - Neutrophil count decreased [None]
